FAERS Safety Report 6172867-0 (Version None)
Quarter: 2009Q2

REPORT INFORMATION
  Report Type: 
  Country: None (occurrence: None)
  Receive Date: 20090430
  Receipt Date: 20090422
  Transmission Date: 20091009
  Serious: Yes (Hospitalization, Other)
  Sender: FDA-Public Use
  Company Number: US-ROCHE-619163

PATIENT
  Sex: Female
  Weight: 74.4 kg

DRUGS (8)
  1. BONIVA [Suspect]
     Indication: OSTEOPOROSIS
     Route: 048
     Dates: start: 20080530
  2. SIMVASTATIN [Concomitant]
     Dosage: FREQUENCY: DAILY
     Route: 048
  3. TOPROL-XL [Concomitant]
     Dosage: DRUG: TOPROL XL, FREQUENCY: DAILY
     Route: 048
  4. AMLODIPINE [Concomitant]
     Indication: INSOMNIA
     Dosage: DRUG: AMLODIN CR, FREQUENCY: EVERY NIGHT
     Route: 048
  5. EFFEXOR [Concomitant]
     Indication: ANXIETY
     Dosage: DRUG: EFFEXOR XR, FREQUENCY: DAILY
     Route: 048
  6. NEXIUM [Concomitant]
     Dosage: FREQUENCY: DAILY
     Route: 048
  7. PLAVIX [Concomitant]
     Route: 048
  8. LAMICTAL [Concomitant]
     Route: 048

REACTIONS (3)
  - AMNESIA [None]
  - CEREBROVASCULAR ACCIDENT [None]
  - GASTROOESOPHAGEAL REFLUX DISEASE [None]
